FAERS Safety Report 18367286 (Version 2)
Quarter: 2021Q2

REPORT INFORMATION
  Report Type: Report from Study
  Country: US (occurrence: US)
  Receive Date: 20201009
  Receipt Date: 20210604
  Transmission Date: 20210717
  Serious: Yes (Hospitalization)
  Sender: FDA-Public Use
  Company Number: US-JNJFOC-20201003360

PATIENT
  Age: 20 Year
  Sex: Female

DRUGS (9)
  1. NEXPLANON [Concomitant]
     Active Substance: ETONOGESTREL
  2. FOLIC ACID. [Concomitant]
     Active Substance: FOLIC ACID
  3. HYOSCYAMINE SULFATE. [Concomitant]
     Active Substance: HYOSCYAMINE SULFATE
  4. MOMETASONE [Concomitant]
     Active Substance: MOMETASONE
     Dosage: 0L%
  5. INFLIXIMAB, RECOMBINANT [Suspect]
     Active Substance: INFLIXIMAB
     Indication: INFLAMMATORY BOWEL DISEASE
     Route: 042
     Dates: start: 200711
  6. CETIRIZINE [Concomitant]
     Active Substance: CETIRIZINE HYDROCHLORIDE
  7. STELARA [Concomitant]
     Active Substance: USTEKINUMAB
  8. METHOTREXATE. [Suspect]
     Active Substance: METHOTREXATE
     Indication: INFLAMMATORY BOWEL DISEASE
     Route: 065
  9. ALBUTEROL [SALBUTAMOL] [Concomitant]
     Active Substance: ALBUTEROL

REACTIONS (2)
  - Weight decreased [Recovered/Resolved]
  - Crohn^s disease [Recovered/Resolved]

NARRATIVE: CASE EVENT DATE: 20200924
